FAERS Safety Report 8576730-7 (Version None)
Quarter: 2012Q3

REPORT INFORMATION
  Report Type: 
  Country: None (occurrence: None)
  Receive Date: 20120807
  Receipt Date: 20040301
  Transmission Date: 20120928
  Serious: Yes (Hospitalization)
  Sender: FDA-Public Use
  Company Number: US-ROCHE-1097647

PATIENT
  Sex: Female
  Weight: 67 kg

DRUGS (2)
  1. XOLAIR [Suspect]
     Indication: ASTHMA
     Dates: start: 20010226, end: 20061219
  2. XOLAIR [Suspect]
     Indication: RHINITIS ALLERGIC

REACTIONS (1)
  - PULMONARY FUNCTION TEST DECREASED [None]
